FAERS Safety Report 5903024-8 (Version None)
Quarter: 2008Q3

REPORT INFORMATION
  Report Type: 
  Country: None (occurrence: None)
  Receive Date: 20080929
  Receipt Date: 20080929
  Transmission Date: 20090109
  Serious: Yes (Death)
  Sender: FDA-Public Use
  Company Number: None

PATIENT
  Age: 52 Year
  Sex: Female
  Weight: 86.1834 kg

DRUGS (1)
  1. CARISOPRODOL [Suspect]
     Indication: BACK PAIN
     Dosage: 1 TABLET 3 TIMES A DAY PO
     Route: 048
     Dates: start: 20070106, end: 20080913

REACTIONS (2)
  - DRUG DEPENDENCE [None]
  - INCORRECT DOSE ADMINISTERED [None]
